FAERS Safety Report 6333238-7 (Version None)
Quarter: 2009Q3

REPORT INFORMATION
  Report Type: 
  Country: None (occurrence: None)
  Receive Date: 20090826
  Receipt Date: 20090818
  Transmission Date: 20100115
  Serious: Yes (Hospitalization, Other)
  Sender: FDA-Public Use
  Company Number: ENT 2009-0086

PATIENT
  Age: 75 Year
  Sex: Male

DRUGS (6)
  1. COMTAN [Suspect]
     Indication: DRUG EFFECT DECREASED
     Dosage: 300 MG, ORAL; 200 MG, ORAL; 400 MG, ORAL
     Route: 048
     Dates: start: 20090213, end: 20090317
  2. COMTAN [Suspect]
     Indication: DRUG EFFECT DECREASED
     Dosage: 300 MG, ORAL; 200 MG, ORAL; 400 MG, ORAL
     Route: 048
     Dates: start: 20090417, end: 20090417
  3. COMTAN [Suspect]
     Indication: DRUG EFFECT DECREASED
     Dosage: 300 MG, ORAL; 200 MG, ORAL; 400 MG, ORAL
     Route: 048
     Dates: start: 20090109
  4. COMTAN [Suspect]
     Indication: DRUG EFFECT DECREASED
     Dosage: 300 MG, ORAL; 200 MG, ORAL; 400 MG, ORAL
     Route: 048
     Dates: start: 20090116
  5. COMTAN [Suspect]
     Indication: DRUG EFFECT DECREASED
     Dosage: 300 MG, ORAL; 200 MG, ORAL; 400 MG, ORAL
     Route: 048
     Dates: start: 20090416
  6. MADOPAR [Concomitant]

REACTIONS (10)
  - ABDOMINAL PAIN [None]
  - APATHY [None]
  - BLOOD CREATININE DECREASED [None]
  - BLOOD POTASSIUM DECREASED [None]
  - DECREASED ACTIVITY [None]
  - DELUSION [None]
  - DIARRHOEA [None]
  - HAEMATOCRIT DECREASED [None]
  - HAEMOGLOBIN DECREASED [None]
  - RED BLOOD CELL COUNT DECREASED [None]
